FAERS Safety Report 9126719 (Version 1)
Quarter: 2013Q1

REPORT INFORMATION
  Report Type: Spontaneous
  Country: US (occurrence: US)
  Receive Date: 20130122
  Receipt Date: 20130122
  Transmission Date: 20140127
  Serious: Yes (Hospitalization)
  Sender: FDA-Public Use
  Company Number: US-GENZYME-THYR-1000710

PATIENT
  Sex: Male

DRUGS (13)
  1. THYROGEN [Suspect]
     Indication: DIAGNOSTIC PROCEDURE
     Dosage: 0.9 MG/ML, UNK(BUTTOCKS)
     Route: 030
     Dates: start: 20120521, end: 20120521
  2. TRICOR [Concomitant]
     Indication: PRODUCT USED FOR UNKNOWN INDICATION
     Dosage: UNK, QD
     Route: 065
  3. ROBAXIN [Concomitant]
     Indication: PRODUCT USED FOR UNKNOWN INDICATION
     Dosage: UNK, QD
     Route: 065
  4. VICODIN [Concomitant]
     Indication: PRODUCT USED FOR UNKNOWN INDICATION
     Dosage: UNK, PRN
     Route: 065
  5. BENICAR [Concomitant]
     Indication: HYPERTENSION
     Dosage: UNK, QD
     Route: 065
  6. LASIX [Concomitant]
     Indication: OEDEMA PERIPHERAL
     Dosage: UNK, QD
     Route: 065
  7. TRANZENE [Concomitant]
     Indication: PRODUCT USED FOR UNKNOWN INDICATION
     Dosage: 7.5 MG, QD
     Route: 065
  8. CELEXA [Concomitant]
     Indication: DEPRESSION
     Dosage: UNK, QD
     Route: 065
  9. SYNTHROID [Concomitant]
     Indication: HYPOTHYROIDISM
     Dosage: UNK, QD
     Route: 065
  10. OXYCODONE [Concomitant]
     Indication: PRODUCT USED FOR UNKNOWN INDICATION
     Dosage: UNK, PRN
     Route: 065
  11. CLORAZEPATE [Concomitant]
     Indication: PRODUCT USED FOR UNKNOWN INDICATION
     Dosage: UNK
     Route: 065
  12. CHLORIDE [Concomitant]
     Indication: PRODUCT USED FOR UNKNOWN INDICATION
     Dosage: UNK
     Route: 065
  13. NORCO [Concomitant]
     Indication: PAIN
     Dosage: UNK
     Route: 065

REACTIONS (1)
  - Pneumonia [Recovered/Resolved]
